FAERS Safety Report 14084662 (Version 1)
Quarter: 2017Q4

REPORT INFORMATION
  Report Type: Spontaneous
  Country: US (occurrence: None)
  Receive Date: 20171013
  Receipt Date: 20171013
  Transmission Date: 20180321
  Serious: Yes (Other)
  Sender: FDA-Public Use
  Company Number: None

PATIENT
  Age: 76 Year
  Sex: Male
  Weight: 100 kg

DRUGS (1)
  1. HEPARIN SODIUM. [Suspect]
     Active Substance: HEPARIN SODIUM
     Indication: CAROTID ARTERY STENT INSERTION
     Dosage: 2000-5000 UNITS 5-30 MIN. IV
     Route: 042
     Dates: start: 20170828

REACTIONS (1)
  - Product quality issue [None]

NARRATIVE: CASE EVENT DATE: 20170828
